FAERS Safety Report 24110265 (Version 4)
Quarter: 2024Q4

REPORT INFORMATION
  Report Type: Spontaneous
  Country: JP (occurrence: JP)
  Receive Date: 20240718
  Receipt Date: 20241018
  Transmission Date: 20250115
  Serious: No
  Sender: PFIZER
  Company Number: JP-PFIZER INC-PV202400088865

PATIENT
  Sex: Male

DRUGS (1)
  1. GENOTROPIN [Suspect]
     Active Substance: SOMATROPIN
     Dosage: UNK
     Route: 058

REACTIONS (5)
  - Product odour abnormal [Unknown]
  - Device issue [Unknown]
  - Device leakage [Unknown]
  - Poor quality device used [Unknown]
  - Wrong technique in device usage process [Unknown]

NARRATIVE: CASE EVENT DATE: 20240706
